FAERS Safety Report 20468144 (Version 1)
Quarter: 2022Q1

REPORT INFORMATION
  Report Type: Spontaneous
  Country: US (occurrence: US)
  Receive Date: 20220214
  Receipt Date: 20220214
  Transmission Date: 20220423
  Serious: Yes (Other)
  Sender: FDA-Public Use
  Company Number: US-CELLTRION INC.-2022US001504

PATIENT

DRUGS (4)
  1. TRUXIMA [Suspect]
     Active Substance: RITUXIMAB-ABBS
     Indication: Extranodal marginal zone B-cell lymphoma (MALT type)
     Dosage: 63 WEEKLY
     Dates: start: 20220119
  2. TRUXIMA [Suspect]
     Active Substance: RITUXIMAB-ABBS
     Dosage: 800 WEEKLY
     Dates: start: 20220126
  3. TRUXIMA [Suspect]
     Active Substance: RITUXIMAB-ABBS
     Dosage: 800 WEEKLY
     Dates: start: 20220202
  4. TRUXIMA [Suspect]
     Active Substance: RITUXIMAB-ABBS
     Dosage: 800 WEEKLY
     Dates: start: 20220209

REACTIONS (2)
  - Extranodal marginal zone B-cell lymphoma (MALT type) [Unknown]
  - Off label use [Unknown]
